FAERS Safety Report 9814429 (Version 2)
Quarter: 2014Q2

REPORT INFORMATION
  Report Type: Report from Study
  Country: NL (occurrence: NL)
  Receive Date: 20140113
  Receipt Date: 20140408
  Transmission Date: 20141212
  Serious: Yes (Death, Other)
  Sender: FDA-Public Use
  Company Number: PHHY2014NL002847

PATIENT
  Sex: Female

DRUGS (6)
  1. ZOMETA [Suspect]
     Indication: BREAST CANCER METASTATIC
     Dosage: 4 MG/100 ML (ONCE EVERY 26 WEEKS)
     Route: 042
  2. ZOMETA [Suspect]
     Dosage: 4 MG/100 ML (ONCE EVERY 26 WEEKS)
     Route: 042
     Dates: start: 20120625
  3. ZOMETA [Suspect]
     Dosage: 4 MG/100 ML (ONCE EVERY 26 WEEKS)
     Route: 042
     Dates: start: 20130117
  4. ZOMETA [Suspect]
     Dosage: 4 MG/100 ML (ONCE EVERY 26 WEEKS)
     Route: 042
     Dates: start: 20130716
  5. ZOMETA [Suspect]
     Dosage: 4 MG, ONCE EVERY 6 MONTHS
     Route: 042
     Dates: end: 201312
  6. LETROZOLE [Concomitant]
     Dosage: UNK UKN, UNK

REACTIONS (4)
  - Terminal state [Fatal]
  - Breast cancer metastatic [Fatal]
  - Metastases to liver [Unknown]
  - Inappropriate schedule of drug administration [Unknown]
